FAERS Safety Report 25491941 (Version 3)
Quarter: 2025Q3

REPORT INFORMATION
  Report Type: Spontaneous
  Country: EG (occurrence: EG)
  Receive Date: 20250630
  Receipt Date: 20250819
  Transmission Date: 20251020
  Serious: Yes (Other)
  Sender: NOVO NORDISK
  Company Number: EG-NOVOPROD-1467442

PATIENT
  Sex: Female

DRUGS (3)
  1. INSULIN HUMAN [Suspect]
     Active Substance: INSULIN HUMAN
     Indication: Diabetes mellitus
     Dosage: 55 IU, QD (30 U AT MORNING/25 U AT NIGHT)
     Dates: start: 2016
  2. INSULIN HUMAN [Suspect]
     Active Substance: INSULIN HUMAN
     Dosage: 55 IU, QD(30U AT MORNING/25U AT NIGHT)
  3. INSULIN HUMAN [Suspect]
     Active Substance: INSULIN HUMAN

REACTIONS (5)
  - Hyperglycaemia [Not Recovered/Not Resolved]
  - Abscess limb [Not Recovered/Not Resolved]
  - Device issue [Unknown]
  - Drug dose omission by device [Unknown]
  - Wrong technique in product usage process [Unknown]
